FAERS Safety Report 4960802-X (Version None)
Quarter: 2006Q2

REPORT INFORMATION
  Report Type: 
  Country: None (occurrence: None)
  Receive Date: 20060403
  Receipt Date: 20060323
  Transmission Date: 20061013
  Serious: Yes (Life-Threatening)
  Sender: FDA-Public Use
  Company Number: 2006PK00562

PATIENT
  Age: 71 Year
  Sex: Female

DRUGS (9)
  1. NEXIUM [Suspect]
     Indication: GASTRIC ULCER
     Route: 048
     Dates: start: 20060211
  2. DEPAKENE [Interacting]
     Indication: EPILEPSY
     Dates: start: 20060212
  3. FLAGYL [Interacting]
     Indication: DIVERTICULAR PERFORATION
     Route: 042
     Dates: start: 20060211, end: 20060225
  4. DIFLUCAN [Interacting]
     Indication: DIVERTICULAR PERFORATION
     Route: 042
     Dates: start: 20060213, end: 20060218
  5. ROCEPHIN [Concomitant]
     Indication: DIVERTICULAR PERFORATION
     Route: 042
     Dates: start: 20060211, end: 20060225
  6. HYDROCORTISONE [Concomitant]
     Indication: BRAIN NEOPLASM MALIGNANT
     Dates: start: 20060214, end: 20060216
  7. TRAMAL [Concomitant]
     Indication: ABDOMINAL PAIN
     Dates: start: 20060214, end: 20060216
  8. PERFALGAN [Concomitant]
     Indication: ABDOMINAL PAIN
     Dates: start: 20060214, end: 20060219
  9. DEXAMETHASONE TAB [Concomitant]
     Indication: BRAIN NEOPLASM MALIGNANT
     Dates: start: 20060212, end: 20060213

REACTIONS (3)
  - DRUG INTERACTION [None]
  - DRUG LEVEL INCREASED [None]
  - STATUS EPILEPTICUS [None]
